FAERS Safety Report 7655498-2 (Version None)
Quarter: 2011Q3

REPORT INFORMATION
  Report Type: 
  Country: None (occurrence: None)
  Receive Date: 20110804
  Receipt Date: 20110802
  Transmission Date: 20111222
  Serious: Yes (Life-Threatening, Hospitalization, Other)
  Sender: FDA-Public Use
  Company Number: DE-ABBOTT-11P-062-0842239-00

PATIENT
  Age: 75 Year
  Sex: Female

DRUGS (5)
  1. CLARITHROMYCIN [Suspect]
     Indication: PNEUMONIA
     Route: 048
     Dates: start: 20110421, end: 20110426
  2. BLOPRESS PLUS/ATACAND PLUS [Suspect]
     Dosage: 16/12.5MG
     Dates: start: 20110101, end: 20110501
  3. BLOPRESS PLUS/ATACAND PLUS [Suspect]
     Indication: PRODUCT USED FOR UNKNOWN INDICATION
     Dosage: DOSE: 8/6.25MG (16/12.5MG X 1/2 TABLET)
     Dates: start: 20090101, end: 20110101
  4. BLOPRESS PLUS/ATACAND PLUS [Suspect]
     Dosage: DOSE: 8/6.25MG (16/12.5MG X 1/2 TABLET)
     Dates: start: 20110502, end: 20110504
  5. RAMIPRIL [Suspect]
     Indication: PRODUCT USED FOR UNKNOWN INDICATION
     Route: 048
     Dates: start: 20110322, end: 20110504

REACTIONS (1)
  - RENAL FAILURE ACUTE [None]
